FAERS Safety Report 6205084-6 (Version None)
Quarter: 2009Q2

REPORT INFORMATION
  Report Type: 
  Country: None (occurrence: None)
  Receive Date: 20090526
  Receipt Date: 20090511
  Transmission Date: 20091009
  Serious: Yes (Hospitalization, Other)
  Sender: FDA-Public Use
  Company Number: A-NJ2008-20795

PATIENT
  Age: 57 Year
  Sex: Female
  Weight: 49.9 kg

DRUGS (12)
  1. BOSENTAN I.PAH_SPC TABLET 62.5 MG [Suspect]
     Indication: PULMONARY HYPERTENSION
     Dosage: 62.5 MG, BID, ORAL,  ORAL
     Route: 048
     Dates: start: 20080523, end: 20080601
  2. BOSENTAN I.PAH_SPC TABLET 62.5 MG [Suspect]
     Indication: PULMONARY HYPERTENSION
     Dosage: 62.5 MG, BID, ORAL,  ORAL
     Route: 048
     Dates: start: 20080610
  3. COUMADIN [Suspect]
     Indication: CARDIAC VALVE PROSTHESIS USER
     Dosage: ORAL
     Dates: start: 20070802, end: 20080602
  4. ASPIRIN [Concomitant]
  5. NEXIUM (ESOMEPRAZOLE SODIUM) [Concomitant]
  6. TRIAZOLAM [Concomitant]
  7. FERROUS SULFATE TAB [Concomitant]
  8. REQUIP [Concomitant]
  9. SPIRONOLACTONE [Concomitant]
  10. LEVOTHYROXINE SODIUM [Concomitant]
  11. CARVEDILOL [Concomitant]
  12. FUROSEMIDE [Concomitant]

REACTIONS (11)
  - ANAEMIA [None]
  - DIZZINESS [None]
  - FATIGUE [None]
  - GASTRITIS EROSIVE [None]
  - ILLOGICAL THINKING [None]
  - INTERNATIONAL NORMALISED RATIO INCREASED [None]
  - MUSCLE SPASMS [None]
  - OCCULT BLOOD POSITIVE [None]
  - PALPITATIONS [None]
  - PROTHROMBIN TIME PROLONGED [None]
  - WHITE BLOOD CELL COUNT INCREASED [None]
